FAERS Safety Report 7000549-1 (Version None)
Quarter: 2010Q3

REPORT INFORMATION
  Report Type: 
  Country: None (occurrence: None)
  Receive Date: 20100920
  Receipt Date: 20071001
  Transmission Date: 20110219
  Serious: Yes (Other)
  Sender: FDA-Public Use
  Company Number: US-ASTRAZENECA-2006UW11792

PATIENT
  Sex: Female
  Weight: 122.5 kg

DRUGS (28)
  1. SEROQUEL [Suspect]
     Indication: DEPRESSION
     Route: 048
     Dates: start: 20050101, end: 20060101
  2. SEROQUEL [Suspect]
     Indication: ANXIETY
     Route: 048
     Dates: start: 20050101, end: 20060101
  3. SEROQUEL [Suspect]
     Dosage: 100 MG - 200 MG
     Route: 048
     Dates: start: 20050505
  4. SEROQUEL [Suspect]
     Dosage: 100 MG - 200 MG
     Route: 048
     Dates: start: 20050505
  5. ZYPREXA [Suspect]
  6. PROZAC [Concomitant]
     Dates: start: 20041201
  7. PROZAC [Concomitant]
  8. REGLAN [Concomitant]
     Indication: DIARRHOEA
     Route: 048
  9. HYDROCHLOROTHIAZIDE [Concomitant]
  10. NAPROXEN [Concomitant]
  11. CYCLOBENZAPRINE HCL [Concomitant]
  12. ACETAMINOPHEN AND HYDROCODONE BITARTRATE [Concomitant]
     Dosage: 5 MG/ 500 MG
  13. PROPRANOLOL HYDROCHLORIDE [Concomitant]
  14. LUNESTA [Concomitant]
     Route: 048
  15. METHYLPREDNISOLONE [Concomitant]
  16. FUROSEMIDE [Concomitant]
  17. XANAX [Concomitant]
     Indication: ANXIETY
     Dosage: STRENGTH 1 MG, 2 MG. DOSE 4 MG AS NEEDED
  18. ALTACE [Concomitant]
     Route: 048
  19. PHENTERMINE [Concomitant]
     Route: 048
  20. PREVACID [Concomitant]
     Route: 048
  21. WELLBUTRIN XL [Concomitant]
     Route: 048
  22. PROTONIX [Concomitant]
  23. LOVENOX [Concomitant]
     Route: 048
  24. LIPITOR [Concomitant]
     Route: 048
  25. ASPIRIN [Concomitant]
     Route: 048
  26. METOPROLOL [Concomitant]
     Route: 048
  27. VERAPAMIL [Concomitant]
  28. SINGULAIR [Concomitant]

REACTIONS (2)
  - DIABETIC KETOACIDOSIS [None]
  - HYPERGLYCAEMIA [None]
